FAERS Safety Report 15246539 (Version 1)
Quarter: 2018Q3

REPORT INFORMATION
  Report Type: Report from Study
  Country: US (occurrence: US)
  Receive Date: 20180806
  Receipt Date: 20180806
  Transmission Date: 20181010
  Serious: Yes (Hospitalization)
  Sender: FDA-Public Use
  Company Number: US-ACTELION-A-NJ2018-173287

PATIENT
  Age: 66 Year
  Sex: Female

DRUGS (15)
  1. AMITIZA [Concomitant]
     Active Substance: LUBIPROSTONE
  2. LYRICA [Concomitant]
     Active Substance: PREGABALIN
  3. METHOCARBAMOL. [Concomitant]
     Active Substance: METHOCARBAMOL
  4. MAGNESIUM OXIDE. [Concomitant]
     Active Substance: MAGNESIUM OXIDE
  5. ADEMPAS [Concomitant]
     Active Substance: RIOCIGUAT
  6. DOXYCYCLINE. [Concomitant]
     Active Substance: DOXYCYCLINE
  7. LASIX [Concomitant]
     Active Substance: FUROSEMIDE
  8. MULTIVITAMIN [Concomitant]
     Active Substance: VITAMINS
  9. ATORVASTATIN [Concomitant]
     Active Substance: ATORVASTATIN
  10. ONDANSETRON [Concomitant]
     Active Substance: ONDANSETRON
  11. OPSUMIT [Suspect]
     Active Substance: MACITENTAN
     Indication: PULMONARY ARTERIAL HYPERTENSION
     Dosage: 10 MG, QD
     Route: 048
     Dates: start: 20160621
  12. DILTIAZEM. [Concomitant]
     Active Substance: DILTIAZEM
  13. HYDROCODONE BITARTRATE AND ACETAMINOPHEN [Concomitant]
     Active Substance: ACETAMINOPHEN\HYDROCODONE BITARTRATE
  14. LORTAB [Concomitant]
     Active Substance: ACETAMINOPHEN\HYDROCODONE BITARTRATE
  15. VALSARTAN. [Concomitant]
     Active Substance: VALSARTAN

REACTIONS (4)
  - Kidney infection [Recovered/Resolved]
  - Fibromyalgia [Unknown]
  - Bacteraemia [Recovered/Resolved]
  - Chest pain [Unknown]

NARRATIVE: CASE EVENT DATE: 20180508
